FAERS Safety Report 8394349-8 (Version None)
Quarter: 2012Q2

REPORT INFORMATION
  Report Type: 
  Country: None (occurrence: None)
  Receive Date: 20120530
  Receipt Date: 20120522
  Transmission Date: 20120825
  Serious: Yes (Hospitalization, Disabling)
  Sender: FDA-Public Use
  Company Number: US-BAYER-2011-123562

PATIENT
  Age: 38 Year
  Sex: Female
  Weight: 102.4 kg

DRUGS (4)
  1. ASPIRIN [Concomitant]
     Dosage: UNK
     Dates: start: 20081001
  2. YASMIN [Suspect]
     Dosage: UNK
     Dates: start: 20041020, end: 20081101
  3. NEURONTIN [Concomitant]
     Dosage: UNK
     Dates: start: 20081001
  4. YAZ [Suspect]
     Dosage: UNK
     Dates: start: 20041020, end: 20081101

REACTIONS (9)
  - FEMORAL ARTERY OCCLUSION [None]
  - INJURY [None]
  - SCAR [None]
  - GENERAL PHYSICAL HEALTH DETERIORATION [None]
  - DEEP VEIN THROMBOSIS [None]
  - PERIPHERAL ISCHAEMIA [None]
  - ANXIETY [None]
  - PAIN [None]
  - EMOTIONAL DISTRESS [None]
